FAERS Safety Report 5415624-2 (Version None)
Quarter: 2007Q3

REPORT INFORMATION
  Report Type: 
  Country: None (occurrence: None)
  Receive Date: 20070815
  Receipt Date: 20070814
  Transmission Date: 20080115
  Serious: Yes (Hospitalization, Other)
  Sender: FDA-Public Use
  Company Number: US-BRISTOL-MYERS SQUIBB COMPANY-13778154

PATIENT
  Age: 91 Year
  Sex: Female

DRUGS (17)
  1. BUSPAR [Suspect]
     Dates: start: 20041201
  2. TEQUIN [Suspect]
  3. MAGNESIUM SULFATE [Concomitant]
  4. LISINOPRIL [Concomitant]
  5. SENOKOT [Concomitant]
     Route: 048
  6. XALATAN [Concomitant]
  7. METFORMIN HCL [Concomitant]
  8. SEROQUEL [Concomitant]
  9. ASPIRIN [Concomitant]
  10. DIGOXIN [Concomitant]
  11. IRON [Concomitant]
  12. TRUSOPT [Concomitant]
  13. ASCORBIC ACID [Concomitant]
  14. TYLENOL (CAPLET) [Concomitant]
  15. INSULIN [Concomitant]
  16. TRAZODONE HCL [Concomitant]
  17. REMERON [Concomitant]

REACTIONS (5)
  - ACUTE RESPIRATORY FAILURE [None]
  - CARDIAC FAILURE CONGESTIVE [None]
  - CHOKING [None]
  - PNEUMONIA ASPIRATION [None]
  - SEPSIS [None]
